FAERS Safety Report 6204714-2 (Version None)
Quarter: 2009Q2

REPORT INFORMATION
  Report Type: 
  Country: None (occurrence: None)
  Receive Date: 20090527
  Receipt Date: 20090525
  Transmission Date: 20091009
  Serious: Yes (Death, Hospitalization)
  Sender: FDA-Public Use
  Company Number: PHHY2009FR20289

PATIENT
  Age: 84 Year
  Sex: Male
  Weight: 40 kg

DRUGS (1)
  1. EXELON [Suspect]
     Indication: DEMENTIA
     Dosage: 9.5 MG
     Route: 062

REACTIONS (7)
  - AGITATION [None]
  - CARDIAC FAILURE [None]
  - CONFUSIONAL STATE [None]
  - CONVULSION [None]
  - LUNG DISORDER [None]
  - RENAL FAILURE ACUTE [None]
  - STUPOR [None]
